FAERS Safety Report 9415059 (Version 1)
Quarter: 2013Q3

REPORT INFORMATION
  Report Type: Spontaneous
  Country: US (occurrence: US)
  Receive Date: 20130723
  Receipt Date: 20130723
  Transmission Date: 20140515
  Serious: Yes (Death)
  Sender: FDA-Public Use
  Company Number: US-SANOFI-AVENTIS-2013SA073602

PATIENT
  Age: 56 Year
  Sex: Female

DRUGS (9)
  1. HYDROXYZINE [Suspect]
     Indication: BIPOLAR DISORDER
     Route: 048
  2. HYDROXYZINE [Suspect]
     Indication: SUICIDE ATTEMPT
     Route: 048
  3. HYDROXYZINE [Suspect]
     Indication: BIPOLAR DISORDER
     Dosage: 58 TABLETS TAKEN OVER 11 DAYS
     Route: 048
  4. HYDROXYZINE [Suspect]
     Indication: SUICIDE ATTEMPT
     Dosage: 58 TABLETS TAKEN OVER 11 DAYS
     Route: 048
  5. ZOLPIDEM [Suspect]
     Indication: SUICIDE ATTEMPT
     Route: 048
  6. CITALOPRAM [Concomitant]
  7. NAPROXEN [Concomitant]
  8. LORAZEPAM [Concomitant]
  9. DICYCLOMINE [Concomitant]

REACTIONS (4)
  - Cardiomegaly [Fatal]
  - Toxicity to various agents [Unknown]
  - Cardiomegaly [Fatal]
  - Completed suicide [Fatal]
